FAERS Safety Report 20782666 (Version 1)
Quarter: 2022Q2

REPORT INFORMATION
  Report Type: Spontaneous
  Country: NL (occurrence: NL)
  Receive Date: 20220504
  Receipt Date: 20220504
  Transmission Date: 20220721
  Serious: Yes (Other)
  Sender: FDA-Public Use
  Company Number: NL-MYLANLABS-2022M1032389

PATIENT
  Age: 35 Year
  Sex: Female
  Weight: 117 kg

DRUGS (1)
  1. TOBRAMYCIN [Suspect]
     Active Substance: TOBRAMYCIN
     Indication: Infective pulmonary exacerbation of cystic fibrosis
     Dosage: MEAN DOSE: 4.9 MG/KG/24H
     Route: 042

REACTIONS (3)
  - Primary ciliary dyskinesia [Not Recovered/Not Resolved]
  - Ototoxicity [Not Recovered/Not Resolved]
  - Conductive deafness [Not Recovered/Not Resolved]
